FAERS Safety Report 5033529-6 (Version None)
Quarter: 2006Q2

REPORT INFORMATION
  Report Type: 
  Country: None (occurrence: None)
  Receive Date: 20060621
  Receipt Date: 20060525
  Transmission Date: 20061013
  Serious: Yes (Hospitalization)
  Sender: FDA-Public Use
  Company Number: DL2006273

PATIENT
  Age: 30 Year
  Sex: Female

DRUGS (2)
  1. MIFEPRISTONE TABLET, 200 MG (DANCO LABS) [Suspect]
     Indication: ABORTION INDUCED
     Dosage: 200 MG, ORAL
     Route: 048
     Dates: start: 20051104
  2. MISOPROSTOL [Suspect]
     Dosage: 800 MCG, VAGINAL
     Route: 067
     Dates: start: 20051105

REACTIONS (4)
  - ABDOMINAL PAIN [None]
  - ABORTION INCOMPLETE [None]
  - POST ABORTION INFECTION [None]
  - PYREXIA [None]
